FAERS Safety Report 5425323-9 (Version None)
Quarter: 2007Q3

REPORT INFORMATION
  Report Type: 
  Country: None (occurrence: None)
  Receive Date: 20070824
  Receipt Date: 20070823
  Transmission Date: 20080115
  Serious: Yes (Other)
  Sender: FDA-Public Use
  Company Number: US-SHR-US-2007-027409

PATIENT
  Age: 52 Year
  Sex: Female
  Weight: 122.45 kg

DRUGS (1)
  1. MAGNEVIST [Suspect]
     Dosage: 15 ML, 2 DOSES
     Route: 042
     Dates: start: 20070723, end: 20070723

REACTIONS (2)
  - CEREBROVASCULAR ACCIDENT [None]
  - FEELING HOT [None]
